FAERS Safety Report 15311462 (Version 1)
Quarter: 2018Q3

REPORT INFORMATION
  Report Type: Spontaneous
  Country: US (occurrence: US)
  Receive Date: 20180823
  Receipt Date: 20180823
  Transmission Date: 20181010
  Serious: No
  Sender: FDA-Public Use
  Company Number: US-PFIZER INC-2018338398

PATIENT
  Age: 75 Year
  Sex: Female

DRUGS (3)
  1. TRAMADOL. [Suspect]
     Active Substance: TRAMADOL
     Indication: PAIN
     Dosage: UNK, AS NEEDED
  2. METHOTREXATE SODIUM. [Suspect]
     Active Substance: METHOTREXATE SODIUM
     Indication: PAIN
     Dosage: UNK, WEEKLY (1.0 CC PER WEEK)
  3. MEDROL [Suspect]
     Active Substance: METHYLPREDNISOLONE
     Indication: PAIN
     Dosage: 4 MG, DAILY

REACTIONS (4)
  - Drug ineffective for unapproved indication [Unknown]
  - Joint stiffness [Unknown]
  - Fatigue [Not Recovered/Not Resolved]
  - Swelling [Unknown]
